FAERS Safety Report 7073532-8 (Version None)
Quarter: 2010Q4

REPORT INFORMATION
  Report Type: 
  Country: None (occurrence: None)
  Receive Date: 20101029
  Receipt Date: 20100706
  Transmission Date: 20110411
  Serious: No
  Sender: FDA-Public Use
  Company Number: A0868676A

PATIENT
  Age: 69 Year
  Sex: Female

DRUGS (21)
  1. ADVAIR DISKUS 100/50 [Suspect]
     Indication: EMPHYSEMA
     Route: 055
     Dates: start: 20080101
  2. COMBIVENT [Concomitant]
  3. PLATYPHYLLINE [Concomitant]
  4. LIPITOR [Concomitant]
  5. MOXIFLOXACIN [Concomitant]
  6. AMLODIPINE [Concomitant]
  7. LEVOXYL [Concomitant]
  8. ARIMIDEX [Concomitant]
  9. XANAX [Concomitant]
  10. VITAMIN K TAB [Concomitant]
  11. VITAMIN TAB [Concomitant]
  12. GLUCOPHAGE [Concomitant]
  13. CALCIUM [Concomitant]
  14. LISINOPRIL [Concomitant]
  15. IPRATROPIUM BROMIDE [Concomitant]
  16. ALBUTEROL SULFATE [Concomitant]
  17. CELEXA [Concomitant]
  18. UNKNOWN MEDICATION [Concomitant]
  19. PILOCARPIN [Concomitant]
  20. DORZOLAMIDE [Concomitant]
  21. OXYGEN THERAPY [Concomitant]

REACTIONS (1)
  - SWOLLEN TONGUE [None]
